FAERS Safety Report 8604768-X (Version None)
Quarter: 2012Q3

REPORT INFORMATION
  Report Type: 
  Country: None (occurrence: None)
  Receive Date: 20120820
  Receipt Date: 20120814
  Transmission Date: 20120928
  Serious: Yes (Other)
  Sender: FDA-Public Use
  Company Number: US-TEVA-354203USA

PATIENT
  Sex: Female

DRUGS (2)
  1. CLARAVIS [Suspect]
     Dosage: ALTERNATING QD AND BID
     Route: 048
     Dates: start: 20120418, end: 20120810
  2. ORAL CONTRACEPTIVE NOS [Concomitant]

REACTIONS (2)
  - DRUG DISPENSING ERROR [None]
  - UNINTENDED PREGNANCY [None]
